FAERS Safety Report 7967914-7 (Version None)
Quarter: 2011Q4

REPORT INFORMATION
  Report Type: 
  Country: None (occurrence: None)
  Receive Date: 20111122
  Receipt Date: 20110815
  Transmission Date: 20120403
  Serious: No
  Sender: FDA-Public Use
  Company Number: PHHY2011US64860

PATIENT
  Sex: Female
  Weight: 59 kg

DRUGS (13)
  1. GILENYA [Suspect]
     Dosage: 0.5 MG, DAILY, ORAL
     Route: 048
  2. BACLOFEN [Concomitant]
  3. PANTOPRAZOLE [Concomitant]
  4. AMBIEN [Concomitant]
  5. LASIX [Concomitant]
  6. SEROQUEL [Concomitant]
  7. HIPREX [Concomitant]
  8. KLONOPIN [Concomitant]
  9. ALDACTONE [Concomitant]
  10. OXYCODONE HCL [Concomitant]
  11. POTASSIUM CHLORIDE [Concomitant]
  12. AMITIZA [Concomitant]
  13. ATIVAN [Concomitant]

REACTIONS (2)
  - FATIGUE [None]
  - SOMNOLENCE [None]
